FAERS Safety Report 15045987 (Version 1)
Quarter: 2018Q2

REPORT INFORMATION
  Report Type: Spontaneous
  Country: US (occurrence: US)
  Receive Date: 20180601
  Receipt Date: 20180601
  Transmission Date: 20180711
  Serious: No
  Sender: FDA-Public Use
  Company Number: None

PATIENT
  Age: 65 Year
  Sex: Female

DRUGS (1)
  1. FORTEO [Suspect]
     Active Substance: TERIPARATIDE
     Indication: OSTEOPOROSIS
     Dosage: ?          OTHER STRENGTH:250 UG/ML;?
     Route: 058
     Dates: start: 20180406

REACTIONS (2)
  - Pruritus [None]
  - Pain in extremity [None]

NARRATIVE: CASE EVENT DATE: 20180430
